FAERS Safety Report 18517252 (Version 1)
Quarter: 2020Q4

REPORT INFORMATION
  Report Type: Spontaneous
  Country: DE (occurrence: DE)
  Receive Date: 20201118
  Receipt Date: 20201118
  Transmission Date: 20210114
  Serious: Yes (Other)
  Sender: FDA-Public Use
  Company Number: DE-UCBSA-2020047108

PATIENT
  Age: 31 Year
  Sex: Female
  Weight: 76 kg

DRUGS (14)
  1. CANIFUG KOMBIPACKUNG [Concomitant]
     Indication: VAGINAL INFECTION
     Dosage: 1 COURSE AT GW 7 1/7 AND FOLLOWING DAYS AND AGAIN AT GW 21 3/7 ...
     Route: 067
     Dates: start: 20190909, end: 20191218
  2. PROGESTERON [Concomitant]
     Active Substance: PROGESTERONE
     Indication: PRODUCT USED FOR UNKNOWN INDICATION
     Route: 067
     Dates: start: 20190830, end: 20190909
  3. PARACETAMOL [Concomitant]
     Active Substance: ACETAMINOPHEN
     Indication: PRODUCT USED FOR UNKNOWN INDICATION
     Dosage: AT GW 31 4/7 AND 31 6/7
     Route: 042
     Dates: start: 20200227, end: 20200229
  4. NIFEDIPIN [Concomitant]
     Active Substance: NIFEDIPINE
     Indication: GESTATIONAL HYPERTENSION
     Dosage: 20 [MG/D (BIS 10) ]
     Route: 048
     Dates: start: 20200222, end: 20200301
  5. NOVORAPID [Concomitant]
     Active Substance: INSULIN ASPART
     Indication: TYPE 1 DIABETES MELLITUS
     Route: 058
     Dates: start: 20190721, end: 20200301
  6. L-THYROXIN [Concomitant]
     Active Substance: LEVOTHYROXINE SODIUM
     Indication: AUTOIMMUNE THYROIDITIS
     Dosage: 125 [?G/D ]
     Route: 048
     Dates: start: 20190721, end: 20200301
  7. VITAMIN D NOS [Concomitant]
     Active Substance: VITAMIN D NOS
     Indication: PRODUCT USED FOR UNKNOWN INDICATION
     Dosage: 1000 [IE/D ]
     Route: 048
     Dates: start: 20190912, end: 20200301
  8. RHESONATIV [Concomitant]
     Indication: PROPHYLAXIS AGAINST RH ISOIMMUNISATION
     Dosage: TWICE: IN GW 6 AND 26 1/7.
     Route: 030
  9. METHYLDOPA. [Concomitant]
     Active Substance: METHYLDOPA
     Indication: GESTATIONAL HYPERTENSION
     Dosage: 1000 [MG/D (BIS 250) ]
     Route: 048
     Dates: start: 20200125, end: 20200301
  10. URSOFALK [Concomitant]
     Active Substance: URSODIOL
     Indication: CHOLESTASIS OF PREGNANCY
     Dosage: 750 [MG/D (3X250) ]
     Route: 048
     Dates: start: 20200222, end: 20200301
  11. CELESTAN [Concomitant]
     Active Substance: BETAMETHASONE
     Indication: MATERNAL THERAPY TO ENHANCE FOETAL LUNG MATURITY
     Route: 058
     Dates: start: 20200224, end: 20200227
  12. CIMZIA [Suspect]
     Active Substance: CERTOLIZUMAB PEGOL
     Indication: RHEUMATOID ARTHRITIS
     Dosage: 200 MILLIGRAM, EV 2 WEEKS(QOW)
     Route: 058
     Dates: start: 20190714, end: 20200214
  13. FOSFOMYCIN [Suspect]
     Active Substance: FOSFOMYCIN
     Indication: URINARY TRACT INFECTION
     Dosage: 3000 [MG/D ]/ TWICE, AT GW 3 4/7 AND AT 9 1/7
     Route: 048
     Dates: start: 20190815, end: 20190923
  14. GRIPPEIMPFSTOFF [Concomitant]
     Active Substance: INFLUENZA VIRUS VACCINE
     Indication: IMMUNISATION
     Route: 030

REACTIONS (2)
  - Maternal exposure before pregnancy [Unknown]
  - Premature baby [Unknown]

NARRATIVE: CASE EVENT DATE: 2019
